FAERS Safety Report 8079984-9 (Version None)
Quarter: 2012Q1

REPORT INFORMATION
  Report Type: 
  Country: None (occurrence: None)
  Receive Date: 20120128
  Receipt Date: 20110808
  Transmission Date: 20120608
  Serious: No
  Sender: FDA-Public Use
  Company Number: US-ABBOTT-11P-163-0843686-00

PATIENT
  Sex: Female
  Weight: 54.48 kg

DRUGS (3)
  1. APRISO [Concomitant]
     Indication: COLITIS ULCERATIVE
  2. HUMIRA [Suspect]
     Indication: COLITIS ULCERATIVE
     Dates: start: 20110301, end: 20110604
  3. CANASA [Concomitant]
     Indication: COLITIS ULCERATIVE

REACTIONS (3)
  - CRYPTOSPORIDIOSIS INFECTION [None]
  - VOMITING [None]
  - DIARRHOEA [None]
